FAERS Safety Report 19352532 (Version 3)
Quarter: 2021Q4

REPORT INFORMATION
  Report Type: Report from Study
  Country: DE (occurrence: DE)
  Receive Date: 20210601
  Receipt Date: 20211214
  Transmission Date: 20220304
  Serious: Yes (Hospitalization, Other)
  Sender: FDA-Public Use
  Company Number: DE-SHIRE-DE202025228

PATIENT
  Age: 60 Year
  Sex: Male

DRUGS (51)
  1. TEDUGLUTIDE [Suspect]
     Active Substance: TEDUGLUTIDE
     Indication: Short-bowel syndrome
     Dosage: 3.8 MILLIGRAM (TED DAILY DOSE 0.0500 MG/KG, TED DOSES PER WEEK 7)
     Route: 065
     Dates: start: 20150511, end: 20150911
  2. TEDUGLUTIDE [Suspect]
     Active Substance: TEDUGLUTIDE
     Indication: Short-bowel syndrome
     Dosage: 3.8 MILLIGRAM (TED DAILY DOSE 0.0500 MG/KG, TED DOSES PER WEEK 7)
     Route: 065
     Dates: start: 20150511, end: 20150911
  3. TEDUGLUTIDE [Suspect]
     Active Substance: TEDUGLUTIDE
     Indication: Short-bowel syndrome
     Dosage: 3.8 MILLIGRAM (TED DAILY DOSE 0.0500 MG/KG, TED DOSES PER WEEK 7)
     Route: 065
     Dates: start: 20150511, end: 20150911
  4. TEDUGLUTIDE [Suspect]
     Active Substance: TEDUGLUTIDE
     Indication: Short-bowel syndrome
     Dosage: 3.8 MILLIGRAM (TED DAILY DOSE 0.0500 MG/KG, TED DOSES PER WEEK 7)
     Route: 065
     Dates: start: 20150511, end: 20150911
  5. TEDUGLUTIDE [Suspect]
     Active Substance: TEDUGLUTIDE
     Dosage: 2.0 MILLIGRAM (TED DAILY DOSE 0.0300 MG/KG, TED DOSES PER WEEK 4)
     Route: 065
     Dates: start: 20150918, end: 20150924
  6. TEDUGLUTIDE [Suspect]
     Active Substance: TEDUGLUTIDE
     Dosage: 2.0 MILLIGRAM (TED DAILY DOSE 0.0300 MG/KG, TED DOSES PER WEEK 4)
     Route: 065
     Dates: start: 20150918, end: 20150924
  7. TEDUGLUTIDE [Suspect]
     Active Substance: TEDUGLUTIDE
     Dosage: 2.0 MILLIGRAM (TED DAILY DOSE 0.0300 MG/KG, TED DOSES PER WEEK 4)
     Route: 065
     Dates: start: 20150918, end: 20150924
  8. TEDUGLUTIDE [Suspect]
     Active Substance: TEDUGLUTIDE
     Dosage: 2.0 MILLIGRAM (TED DAILY DOSE 0.0300 MG/KG, TED DOSES PER WEEK 4)
     Route: 065
     Dates: start: 20150918, end: 20150924
  9. TEDUGLUTIDE [Suspect]
     Active Substance: TEDUGLUTIDE
     Dosage: 2.0 MILLIGRAM (TED DAILY DOSE 0.0300 MG/KG, TED DOSES PER WEEK 7)
     Route: 065
     Dates: start: 20151016, end: 201604
  10. TEDUGLUTIDE [Suspect]
     Active Substance: TEDUGLUTIDE
     Dosage: 2.0 MILLIGRAM (TED DAILY DOSE 0.0300 MG/KG, TED DOSES PER WEEK 7)
     Route: 065
     Dates: start: 20151016, end: 201604
  11. TEDUGLUTIDE [Suspect]
     Active Substance: TEDUGLUTIDE
     Dosage: 2.0 MILLIGRAM (TED DAILY DOSE 0.0300 MG/KG, TED DOSES PER WEEK 7)
     Route: 065
     Dates: start: 20151016, end: 201604
  12. TEDUGLUTIDE [Suspect]
     Active Substance: TEDUGLUTIDE
     Dosage: 2.0 MILLIGRAM (TED DAILY DOSE 0.0300 MG/KG, TED DOSES PER WEEK 7)
     Route: 065
     Dates: start: 20151016, end: 201604
  13. TEDUGLUTIDE [Suspect]
     Active Substance: TEDUGLUTIDE
     Dosage: 2.0 MILLIGRAM (TED DAILY DOSE 0.0300 MG/KG, TED DOSES PER WEEK 3)
     Route: 065
     Dates: start: 20150925, end: 20151001
  14. TEDUGLUTIDE [Suspect]
     Active Substance: TEDUGLUTIDE
     Dosage: 2.0 MILLIGRAM (TED DAILY DOSE 0.0300 MG/KG, TED DOSES PER WEEK 3)
     Route: 065
     Dates: start: 20150925, end: 20151001
  15. TEDUGLUTIDE [Suspect]
     Active Substance: TEDUGLUTIDE
     Dosage: 2.0 MILLIGRAM (TED DAILY DOSE 0.0300 MG/KG, TED DOSES PER WEEK 3)
     Route: 065
     Dates: start: 20150925, end: 20151001
  16. TEDUGLUTIDE [Suspect]
     Active Substance: TEDUGLUTIDE
     Dosage: 2.0 MILLIGRAM (TED DAILY DOSE 0.0300 MG/KG, TED DOSES PER WEEK 3)
     Route: 065
     Dates: start: 20150925, end: 20151001
  17. TEDUGLUTIDE [Suspect]
     Active Substance: TEDUGLUTIDE
     Dosage: 2.0 MILLIGRAM (TED DAILY DOSE 0.0300 MG/KG, TED DOSES PER WEEK 4)
     Route: 065
     Dates: start: 20151002, end: 20151008
  18. TEDUGLUTIDE [Suspect]
     Active Substance: TEDUGLUTIDE
     Dosage: 2.0 MILLIGRAM (TED DAILY DOSE 0.0300 MG/KG, TED DOSES PER WEEK 4)
     Route: 065
     Dates: start: 20151002, end: 20151008
  19. TEDUGLUTIDE [Suspect]
     Active Substance: TEDUGLUTIDE
     Dosage: 2.0 MILLIGRAM (TED DAILY DOSE 0.0300 MG/KG, TED DOSES PER WEEK 4)
     Route: 065
     Dates: start: 20151002, end: 20151008
  20. TEDUGLUTIDE [Suspect]
     Active Substance: TEDUGLUTIDE
     Dosage: 2.0 MILLIGRAM (TED DAILY DOSE 0.0300 MG/KG, TED DOSES PER WEEK 4)
     Route: 065
     Dates: start: 20151002, end: 20151008
  21. TEDUGLUTIDE [Suspect]
     Active Substance: TEDUGLUTIDE
     Dosage: 2.0 MILLIGRAM (TED DAILY DOSE 0.0300 MG/KG, TED DOSES PER WEEK 4)
     Route: 065
     Dates: start: 20151009, end: 20151015
  22. TEDUGLUTIDE [Suspect]
     Active Substance: TEDUGLUTIDE
     Dosage: 2.0 MILLIGRAM (TED DAILY DOSE 0.0300 MG/KG, TED DOSES PER WEEK 4)
     Route: 065
     Dates: start: 20151009, end: 20151015
  23. TEDUGLUTIDE [Suspect]
     Active Substance: TEDUGLUTIDE
     Dosage: 2.0 MILLIGRAM (TED DAILY DOSE 0.0300 MG/KG, TED DOSES PER WEEK 4)
     Route: 065
     Dates: start: 20151009, end: 20151015
  24. TEDUGLUTIDE [Suspect]
     Active Substance: TEDUGLUTIDE
     Dosage: 2.0 MILLIGRAM (TED DAILY DOSE 0.0300 MG/KG, TED DOSES PER WEEK 4)
     Route: 065
     Dates: start: 20151009, end: 20151015
  25. TEDUGLUTIDE [Suspect]
     Active Substance: TEDUGLUTIDE
     Dosage: 2.5 MILLIGRAM (TED DAILY DOSE 0.0300 MG/KG, TED DOSES PER WEEK 7)
     Route: 065
     Dates: start: 20160419, end: 20161026
  26. TEDUGLUTIDE [Suspect]
     Active Substance: TEDUGLUTIDE
     Dosage: 2.5 MILLIGRAM (TED DAILY DOSE 0.0300 MG/KG, TED DOSES PER WEEK 7)
     Route: 065
     Dates: start: 20160419, end: 20161026
  27. TEDUGLUTIDE [Suspect]
     Active Substance: TEDUGLUTIDE
     Dosage: 2.5 MILLIGRAM (TED DAILY DOSE 0.0300 MG/KG, TED DOSES PER WEEK 7)
     Route: 065
     Dates: start: 20160419, end: 20161026
  28. TEDUGLUTIDE [Suspect]
     Active Substance: TEDUGLUTIDE
     Dosage: 2.5 MILLIGRAM (TED DAILY DOSE 0.0300 MG/KG, TED DOSES PER WEEK 7)
     Route: 065
     Dates: start: 20160419, end: 20161026
  29. TEDUGLUTIDE [Suspect]
     Active Substance: TEDUGLUTIDE
     Dosage: 2.7 MILLIGRAM (TED DAILY DOSE 0.0400 MG/KG, TED DOSES PER WEEK 7)
     Route: 065
     Dates: start: 20161027, end: 201910
  30. TEDUGLUTIDE [Suspect]
     Active Substance: TEDUGLUTIDE
     Dosage: 2.7 MILLIGRAM (TED DAILY DOSE 0.0400 MG/KG, TED DOSES PER WEEK 7)
     Route: 065
     Dates: start: 20161027, end: 201910
  31. TEDUGLUTIDE [Suspect]
     Active Substance: TEDUGLUTIDE
     Dosage: 2.7 MILLIGRAM (TED DAILY DOSE 0.0400 MG/KG, TED DOSES PER WEEK 7)
     Route: 065
     Dates: start: 20161027, end: 201910
  32. TEDUGLUTIDE [Suspect]
     Active Substance: TEDUGLUTIDE
     Dosage: 2.7 MILLIGRAM (TED DAILY DOSE 0.0400 MG/KG, TED DOSES PER WEEK 7)
     Route: 065
     Dates: start: 20161027, end: 201910
  33. TEDUGLUTIDE [Suspect]
     Active Substance: TEDUGLUTIDE
     Dosage: 4.0 MILLIGRAM (TED DAILY DOSE 0.0500 MG/KG, TED DOSE PER WEEK 7)
     Route: 065
     Dates: start: 201907, end: 20190806
  34. TEDUGLUTIDE [Suspect]
     Active Substance: TEDUGLUTIDE
     Dosage: 4.0 MILLIGRAM (TED DAILY DOSE 0.0500 MG/KG, TED DOSE PER WEEK 7)
     Route: 065
     Dates: start: 201907, end: 20190806
  35. TEDUGLUTIDE [Suspect]
     Active Substance: TEDUGLUTIDE
     Dosage: 4.0 MILLIGRAM (TED DAILY DOSE 0.0500 MG/KG, TED DOSE PER WEEK 7)
     Route: 065
     Dates: start: 201907, end: 20190806
  36. TEDUGLUTIDE [Suspect]
     Active Substance: TEDUGLUTIDE
     Dosage: 4.0 MILLIGRAM (TED DAILY DOSE 0.0500 MG/KG, TED DOSE PER WEEK 7)
     Route: 065
     Dates: start: 201907, end: 20190806
  37. TEDUGLUTIDE [Suspect]
     Active Substance: TEDUGLUTIDE
     Dosage: 3.6 MILLIGRAM (TED DAILY DOSE 0.0500 MG/KG, TED DAILY DOSES PER WEEK 7)
     Route: 065
     Dates: start: 20190807, end: 20191002
  38. TEDUGLUTIDE [Suspect]
     Active Substance: TEDUGLUTIDE
     Dosage: 3.6 MILLIGRAM (TED DAILY DOSE 0.0500 MG/KG, TED DAILY DOSES PER WEEK 7)
     Route: 065
     Dates: start: 20190807, end: 20191002
  39. TEDUGLUTIDE [Suspect]
     Active Substance: TEDUGLUTIDE
     Dosage: 3.6 MILLIGRAM (TED DAILY DOSE 0.0500 MG/KG, TED DAILY DOSES PER WEEK 7)
     Route: 065
     Dates: start: 20190807, end: 20191002
  40. TEDUGLUTIDE [Suspect]
     Active Substance: TEDUGLUTIDE
     Dosage: 3.6 MILLIGRAM (TED DAILY DOSE 0.0500 MG/KG, TED DAILY DOSES PER WEEK 7)
     Route: 065
     Dates: start: 20190807, end: 20191002
  41. TEDUGLUTIDE [Suspect]
     Active Substance: TEDUGLUTIDE
     Dosage: 3.8 MILLIGRAM (TED DAILY DOSE 0.0500 MG/KG, TED DOSES PER WEEK 7)
     Route: 065
     Dates: start: 20191003
  42. TEDUGLUTIDE [Suspect]
     Active Substance: TEDUGLUTIDE
     Dosage: 3.8 MILLIGRAM (TED DAILY DOSE 0.0500 MG/KG, TED DOSES PER WEEK 7)
     Route: 065
     Dates: start: 20191003
  43. TEDUGLUTIDE [Suspect]
     Active Substance: TEDUGLUTIDE
     Dosage: 3.8 MILLIGRAM (TED DAILY DOSE 0.0500 MG/KG, TED DOSES PER WEEK 7)
     Route: 065
     Dates: start: 20191003
  44. TEDUGLUTIDE [Suspect]
     Active Substance: TEDUGLUTIDE
     Dosage: 3.8 MILLIGRAM (TED DAILY DOSE 0.0500 MG/KG, TED DOSES PER WEEK 7)
     Route: 065
     Dates: start: 20191003
  45. PENICILLIN [Concomitant]
     Active Substance: PENICILLIN
     Indication: Respiratory tract infection
     Dosage: 999.00 UNK
     Route: 065
     Dates: start: 201906, end: 201906
  46. CHOLECALCIFEROL [Concomitant]
     Active Substance: CHOLECALCIFEROL
     Indication: Vitamin supplementation
     Dosage: 999.00 UNK
     Route: 065
     Dates: start: 201910
  47. LOPERAMIDE [Concomitant]
     Active Substance: LOPERAMIDE
     Indication: Diarrhoea
     Dosage: 2 MILLIGRAM, QID
     Route: 048
     Dates: start: 20191002
  48. MAGNESIUM [Concomitant]
     Active Substance: MAGNESIUM
     Indication: Muscle spasms
     Dosage: 999.00 UNK, 3/WEEK
     Route: 042
     Dates: start: 201811, end: 20200108
  49. TINZAPARIN [Concomitant]
     Active Substance: TINZAPARIN
     Indication: Antiphospholipid syndrome
     Dosage: 999999.99 UNK, AS NEEDED
     Route: 065
     Dates: start: 20201021
  50. ENOXAPARIN SODIUM [Concomitant]
     Active Substance: ENOXAPARIN SODIUM
     Indication: Anticoagulant therapy
     Dosage: 9999999.99 UNK, BID
     Route: 065
     Dates: start: 20200526, end: 20200607
  51. VANCOMYCIN [Concomitant]
     Active Substance: VANCOMYCIN
     Indication: Antibiotic therapy
     Dosage: 9999999.99 UNK
     Route: 042
     Dates: start: 20200526, end: 20200607

REACTIONS (1)
  - Sepsis [Recovered/Resolved]

NARRATIVE: CASE EVENT DATE: 20200724
